FAERS Safety Report 6009934-8 (Version None)
Quarter: 2008Q4

REPORT INFORMATION
  Report Type: 
  Country: None (occurrence: None)
  Receive Date: 20081216
  Receipt Date: 20081205
  Transmission Date: 20090506
  Serious: Yes (Other)
  Sender: FDA-Public Use
  Company Number: WAES 0812USA02128

PATIENT

DRUGS (4)
  1. HYDRODIURIL [Suspect]
     Indication: URINE CALCIUM
     Dosage: 12.5 MG/DAILY PO; 25 MG/DAILY PO; 6.25 MG/DAILY PO
     Route: 048
  2. HYDRODIURIL [Suspect]
     Indication: URINE CALCIUM
     Dosage: 12.5 MG/DAILY PO; 25 MG/DAILY PO; 6.25 MG/DAILY PO
     Route: 048
  3. HYDRODIURIL [Suspect]
     Indication: URINE CALCIUM
     Dosage: 12.5 MG/DAILY PO; 25 MG/DAILY PO; 6.25 MG/DAILY PO
     Route: 048
  4. MIDAMOR [Suspect]
     Dosage: 5 MG/DAILY PO
     Route: 048

REACTIONS (2)
  - DEHYDRATION [None]
  - HYPONATRAEMIA [None]
